FAERS Safety Report 8226101-8 (Version None)
Quarter: 2012Q1

REPORT INFORMATION
  Report Type: 
  Country: None (occurrence: None)
  Receive Date: 20120307
  Receipt Date: 20090515
  Transmission Date: 20120608
  Serious: No
  Sender: FDA-Public Use
  Company Number: PHEH2009US05146

PATIENT
  Sex: Female

DRUGS (12)
  1. LACTULOSE [Concomitant]
  2. OMEPRAZOLE [Concomitant]
  3. VITAMIN B12 [Concomitant]
  4. MARINOL [Concomitant]
  5. DILAUDID (HYDROBORPHONE HYDROCHLORIDE) [Concomitant]
  6. COMPAZINE [Concomitant]
  7. ALDACTONE [Concomitant]
  8. SYNTHROID [Concomitant]
  9. ATENOLOL [Concomitant]
  10. AFINITOR [Suspect]
     Dosage: 5 MG
  11. CARAFATE [Concomitant]
  12. MULTIVITAMINS (ASCORBIC ACID, ERGOCALCIFEROL, FOLIC ACID, NICOTINAMIDE [Concomitant]

REACTIONS (8)
  - MALAISE [None]
  - FATIGUE [None]
  - OROPHARYNGEAL PAIN [None]
  - COUGH [None]
  - EPISTAXIS [None]
  - HYPERSENSITIVITY [None]
  - NAUSEA [None]
  - DYSURIA [None]
